FAERS Safety Report 6260473-9 (Version None)
Quarter: 2009Q3

REPORT INFORMATION
  Report Type: 
  Country: None (occurrence: None)
  Receive Date: 20090706
  Receipt Date: 20090618
  Transmission Date: 20100115
  Serious: Yes (Congenital Anomaly)
  Sender: FDA-Public Use
  Company Number: 2009SP014286

PATIENT

DRUGS (2)
  1. PEG-INTRON [Suspect]
     Indication: HEPATITIS C VIRUS TEST
     Dosage: TRPL
     Route: 064
  2. REBETOL [Suspect]
     Indication: HEPATITIS C VIRUS TEST
     Dosage: TRPL
     Route: 064

REACTIONS (2)
  - PATERNAL DRUGS AFFECTING FOETUS [None]
  - TRISOMY 21 [None]
